FAERS Safety Report 6355907-5 (Version None)
Quarter: 2009Q3

REPORT INFORMATION
  Report Type: 
  Country: None (occurrence: None)
  Receive Date: 20090911
  Receipt Date: 20090911
  Transmission Date: 20100115
  Serious: No
  Sender: FDA-Public Use
  Company Number: None

PATIENT
  Sex: Female
  Weight: 47.6277 kg

DRUGS (1)
  1. ABILIFY [Suspect]
     Indication: DEPRESSION
     Dosage: 5MG 1 DAILY
     Dates: start: 20090801, end: 20090827

REACTIONS (6)
  - ASTHENIA [None]
  - DROOLING [None]
  - HYPERHIDROSIS [None]
  - SOMNOLENCE [None]
  - TREMOR [None]
  - VISION BLURRED [None]
